FAERS Safety Report 12062924 (Version 4)
Quarter: 2016Q2

REPORT INFORMATION
  Report Type: Spontaneous
  Country: US (occurrence: US)
  Receive Date: 20160210
  Receipt Date: 20160429
  Transmission Date: 20160815
  Serious: No
  Sender: FDA-Public Use
  Company Number: US-BAYER-2016-024230

PATIENT
  Age: 23 Year
  Sex: Female
  Weight: 53.52 kg

DRUGS (1)
  1. MIRENA [Suspect]
     Active Substance: LEVONORGESTREL
     Indication: CONTRACEPTION
     Dosage: 20 MCG/24HR, CONT
     Route: 015
     Dates: start: 20141204

REACTIONS (6)
  - Device difficult to use [None]
  - Device issue [None]
  - Adverse event [None]
  - Abdominal pain [None]
  - Device use error [None]
  - Panic attack [None]

NARRATIVE: CASE EVENT DATE: 20141231
